FAERS Safety Report 4359890-3 (Version None)
Quarter: 2004Q2

REPORT INFORMATION
  Report Type: 
  Country: None (occurrence: None)
  Receive Date: 20040513
  Receipt Date: 20040430
  Transmission Date: 20050107
  Serious: Yes (Life-Threatening)
  Sender: FDA-Public Use
  Company Number: 206264

PATIENT
  Age: 71 Year
  Sex: Female

DRUGS (1)
  1. MABTHERA (RITUXIMAB) CONC FOR SOLUTION FOR INFUSION [Suspect]
     Indication: IMMUNODEFICIENCY
     Dosage: INTRAVENOUS
     Route: 042
     Dates: start: 20040212, end: 20040213

REACTIONS (3)
  - BLOOD PRESSURE SYSTOLIC INCREASED [None]
  - DYSPHAGIA [None]
  - GUILLAIN-BARRE SYNDROME [None]
